FAERS Safety Report 11941498 (Version 1)
Quarter: 2016Q1

REPORT INFORMATION
  Report Type: Spontaneous
  Country: US (occurrence: US)
  Receive Date: 20160122
  Receipt Date: 20160122
  Transmission Date: 20160526
  Serious: Yes (Other)
  Sender: FDA-Public Use
  Company Number: US-ALLERGAN-1601335US

PATIENT
  Age: 74 Year
  Sex: Female

DRUGS (1)
  1. RESTASIS [Suspect]
     Active Substance: CYCLOSPORINE
     Indication: DRY EYE
     Route: 047

REACTIONS (7)
  - Malaise [Unknown]
  - Diabetes mellitus [Unknown]
  - Neck surgery [Unknown]
  - Thyroid disorder [Unknown]
  - Sciatica [Unknown]
  - Nausea [Unknown]
  - Neuropathy peripheral [Unknown]
